FAERS Safety Report 16976727 (Version 1)
Quarter: 2019Q4

REPORT INFORMATION
  Report Type: Spontaneous
  Country: US (occurrence: US)
  Receive Date: 20191030
  Receipt Date: 20191030
  Transmission Date: 20200122
  Serious: Yes (Disabling)
  Sender: FDA-Public Use
  Company Number: US-TEVA-2019-US-1128461

PATIENT

DRUGS (1)
  1. DOCETAXEL INJECTION [Suspect]
     Active Substance: DOCETAXEL
     Route: 065
     Dates: start: 20171015, end: 20180207

REACTIONS (5)
  - Hair texture abnormal [Unknown]
  - Madarosis [Not Recovered/Not Resolved]
  - Hair colour changes [Unknown]
  - Alopecia [Not Recovered/Not Resolved]
  - Alopecia [Unknown]
